FAERS Safety Report 15533031 (Version 2)
Quarter: 2018Q4

REPORT INFORMATION
  Report Type: Spontaneous
  Country: RU (occurrence: RU)
  Receive Date: 20181019
  Receipt Date: 20181126
  Transmission Date: 20190205
  Serious: No
  Sender: FDA-Public Use
  Company Number: RU-JNJFOC-20181026363

PATIENT
  Age: 29 Year
  Sex: Male

DRUGS (2)
  1. DIOSMIN [Concomitant]
     Active Substance: DIOSMIN
     Route: 065
  2. XARELTO [Suspect]
     Active Substance: RIVAROXABAN
     Indication: THROMBOPHLEBITIS
     Route: 048
     Dates: start: 20180916

REACTIONS (3)
  - Product prescribing issue [Unknown]
  - Nasopharyngitis [Unknown]
  - Product use in unapproved indication [Unknown]

NARRATIVE: CASE EVENT DATE: 201809
